FAERS Safety Report 7502903-8 (Version None)
Quarter: 2011Q2

REPORT INFORMATION
  Report Type: 
  Country: None (occurrence: None)
  Receive Date: 20110525
  Receipt Date: 20100901
  Transmission Date: 20111010
  Serious: No
  Sender: FDA-Public Use
  Company Number: US-NOVEN-ALL1-2010-04648

PATIENT

DRUGS (2)
  1. DAYTRANA [Suspect]
     Dosage: 10 MG, 1X/DAY:QD
     Route: 062
     Dates: start: 20100801
  2. DAYTRANA [Suspect]
     Dosage: 10 MG, 1X/DAY:QD
     Route: 062
     Dates: start: 20100501, end: 20100601

REACTIONS (6)
  - WEIGHT DECREASED [None]
  - THERAPEUTIC RESPONSE DELAYED [None]
  - TIC [None]
  - APPLICATION SITE ERYTHEMA [None]
  - OFF LABEL USE [None]
  - PRODUCT QUALITY ISSUE [None]
